FAERS Safety Report 7226243-X (Version None)
Quarter: 2011Q1

REPORT INFORMATION
  Report Type: 
  Country: None (occurrence: None)
  Receive Date: 20110114
  Receipt Date: 20110104
  Transmission Date: 20110831
  Serious: Yes (Other)
  Sender: FDA-Public Use
  Company Number: CHPA2011US00621

PATIENT
  Sex: Female

DRUGS (4)
  1. PREVACID 24 HR [Suspect]
     Dosage: UNK, UNK
     Route: 048
  2. PREVACID 24 HR [Suspect]
     Dosage: UNK, UNK
     Route: 048
  3. PREVACID 24 HR [Suspect]
     Indication: DYSPEPSIA
     Dosage: UNK, UNK
     Route: 048
  4. PREVACID 24 HR [Suspect]
     Dosage: UNK, UNK
     Route: 048

REACTIONS (3)
  - ANGINA PECTORIS [None]
  - THERAPEUTIC RESPONSE UNEXPECTED [None]
  - OFF LABEL USE [None]
